FAERS Safety Report 17318659 (Version 4)
Quarter: 2020Q1

REPORT INFORMATION
  Report Type: Spontaneous
  Country: JP (occurrence: JP)
  Receive Date: 20200124
  Receipt Date: 20200310
  Transmission Date: 20200409
  Serious: Yes (Death, Other)
  Sender: FDA-Public Use
  Company Number: JP-009507513-2001JPN001965J

PATIENT
  Age: 74 Year
  Sex: Male
  Weight: 59 kg

DRUGS (14)
  1. KEYTRUDA [Suspect]
     Active Substance: PEMBROLIZUMAB
     Indication: NON-SMALL CELL LUNG CANCER
     Dosage: 200 MILLIGRAM, Q3W
     Route: 041
     Dates: start: 20200116, end: 20200116
  2. LOXOPROFEN [Concomitant]
     Active Substance: LOXOPROFEN
     Indication: CANCER PAIN
     Dosage: 60 MILLIGRAM, TID
     Route: 048
     Dates: start: 20190626, end: 20200116
  3. MAGNESIUM OXIDE. [Concomitant]
     Active Substance: MAGNESIUM OXIDE
     Indication: CONSTIPATION
     Dosage: 330 MILLIGRAM, TID
     Route: 048
     Dates: start: 20191030, end: 20200116
  4. SILECE [Concomitant]
     Active Substance: FLUNITRAZEPAM
     Indication: INSOMNIA
     Dosage: 1 MILLIGRAM, QD
     Route: 048
     Dates: end: 20200116
  5. NEXIUM [Concomitant]
     Active Substance: ESOMEPRAZOLE MAGNESIUM
     Indication: PROPHYLAXIS
     Dosage: 10 MILLIGRAM, QD
     Route: 048
     Dates: end: 20200116
  6. OXYCODONE HYDROCHLORIDE. [Concomitant]
     Active Substance: OXYCODONE HYDROCHLORIDE
     Indication: CANCER PAIN
     Dosage: 20 MILLIGRAM, BID
     Route: 048
     Dates: start: 20190701, end: 20200116
  7. FUROSEMIDE. [Concomitant]
     Active Substance: FUROSEMIDE
     Indication: ADVERSE REACTION
     Dosage: 10 MILLIGRAM, QD
     Route: 048
     Dates: start: 20191220, end: 20200116
  8. DAIPHEN [Concomitant]
     Active Substance: SULFAMETHOXAZOLE\TRIMETHOPRIM
     Indication: PROPHYLAXIS
     Dosage: 1 DOSAGE FORM, QD
     Route: 048
     Dates: start: 20191222, end: 20200116
  9. PREDONINE [Concomitant]
     Active Substance: PREDNISOLONE
     Indication: PNEUMONIA
     Dosage: 15 MILLIGRAM, QD
     Route: 048
     Dates: start: 20191223, end: 20200116
  10. OXINORM [Concomitant]
     Dosage: UNK
     Route: 065
  11. ROSUVASTATIN CALCIUM. [Concomitant]
     Active Substance: ROSUVASTATIN CALCIUM
     Indication: DYSLIPIDAEMIA
     Dosage: 2.5 MILLIGRAM, QD
     Route: 048
     Dates: end: 20200116
  12. AVOLVE [Concomitant]
     Active Substance: DUTASTERIDE
     Indication: BENIGN PROSTATIC HYPERPLASIA
     Dosage: 0.5 MILLIGRAM, QD
     Route: 048
     Dates: end: 20200116
  13. NALDEMEDINE TOSYLATE [Concomitant]
     Active Substance: NALDEMEDINE TOSYLATE
     Indication: CONSTIPATION
     Dosage: 0.2 MILLIGRAM, QD
     Route: 048
     Dates: start: 20191204, end: 20200116
  14. TAMSULOSIN HYDROCHLORIDE OD [Concomitant]
     Active Substance: TAMSULOSIN HYDROCHLORIDE
     Indication: BENIGN PROSTATIC HYPERPLASIA
     Dosage: 0.2 MILLIGRAM, QD
     Route: 048
     Dates: end: 20200116

REACTIONS (5)
  - Circulatory collapse [Fatal]
  - Infusion related reaction [Fatal]
  - Lung disorder [Fatal]
  - Shock [Fatal]
  - Respiratory failure [Fatal]

NARRATIVE: CASE EVENT DATE: 20200116
